FAERS Safety Report 9326087 (Version 1)
Quarter: 2013Q2

REPORT INFORMATION
  Report Type: Spontaneous
  Country: US (occurrence: None)
  Receive Date: 20130603
  Receipt Date: 20130603
  Transmission Date: 20140414
  Serious: Yes (Other)
  Sender: FDA-Public Use
  Company Number: None

PATIENT
  Age: 63 Year
  Sex: Female
  Weight: 58.06 kg

DRUGS (2)
  1. LATANOPROST [Suspect]
     Indication: GLAUCOMA
     Dosage: 1 DROP DAILY AT BEDTIME OPTHALMIC
     Route: 047
     Dates: start: 20120101, end: 20130601
  2. TIMOLOL MALEATE [Suspect]
     Dosage: 1 DROP TWICE PER DAY OPTHALMIC
     Route: 047
     Dates: start: 20100301, end: 20130601

REACTIONS (2)
  - Paraesthesia [None]
  - Hypoaesthesia [None]
